FAERS Safety Report 8125259-9 (Version None)
Quarter: 2012Q1

REPORT INFORMATION
  Report Type: 
  Country: None (occurrence: None)
  Receive Date: 20120206
  Receipt Date: 20120128
  Transmission Date: 20120608
  Serious: Yes (Life-Threatening)
  Sender: FDA-Public Use
  Company Number: FK201200245

PATIENT
  Age: 59 Year
  Sex: Male

DRUGS (6)
  1. FLUOROURACIL [Suspect]
     Dosage: 2562 MG, 1 WK, INTRAVENOUS (NOT OTHERWISE SPECIFIED)
     Route: 042
     Dates: start: 20120105, end: 20120116
  2. INTERFERON [Suspect]
     Dates: start: 20120105, end: 20120116
  3. ORAL ANTIDIABETICS [Concomitant]
  4. ADRIAMYCIN PFS [Suspect]
     Dosage: INTRAVENOUS (NOT OTHERWISE
     Route: 042
     Dates: start: 20120105, end: 20120116
  5. OXALIPLATIN [Suspect]
     Dosage: 54.9 MG, INTRAVENOUS (NOT OTHERWISE SPECIFIED)
     Route: 042
     Dates: start: 20120105, end: 20120116
  6. DOXORUBICIN HYDROCHLORIDE [Suspect]
     Dosage: 36.6 MG/M2
     Dates: start: 20120105, end: 20120116

REACTIONS (5)
  - PYREXIA [None]
  - NAUSEA [None]
  - HYPOGLYCAEMIA [None]
  - DIARRHOEA [None]
  - SYNCOPE [None]
